FAERS Safety Report 4656168-5 (Version None)
Quarter: 2005Q2

REPORT INFORMATION
  Report Type: 
  Country: None (occurrence: None)
  Receive Date: 20050509
  Receipt Date: 20040924
  Transmission Date: 20051028
  Serious: No
  Sender: FDA-Public Use
  Company Number: US-GLAXOSMITHKLINE-A0527308A

PATIENT
  Age: 77 Year
  Sex: Female

DRUGS (2)
  1. AVANDAMET [Suspect]
     Indication: DIABETES MELLITUS NON-INSULIN-DEPENDENT
     Dosage: 500MG TWICE PER DAY
     Route: 048
     Dates: start: 20040901
  2. LIPITOR [Concomitant]

REACTIONS (2)
  - DRUG INEFFECTIVE [None]
  - FAECES DISCOLOURED [None]
